FAERS Safety Report 9218603 (Version 2)
Quarter: 2013Q2

REPORT INFORMATION
  Report Type: Spontaneous
  Country: US (occurrence: US)
  Receive Date: 20130409
  Receipt Date: 20130610
  Transmission Date: 20140414
  Serious: Yes (Disabling)
  Sender: FDA-Public Use
  Company Number: US-009507513-1304USA002311

PATIENT
  Age: 72 Year
  Sex: Male
  Weight: 68.93 kg

DRUGS (14)
  1. JANUMET XR [Suspect]
     Indication: DIABETES MELLITUS
     Dosage: 1 DF, ONCE
     Route: 048
     Dates: start: 20130304, end: 20130304
  2. NIASPAN [Concomitant]
     Dosage: UNK, 1000 QD
  3. LIPITOR [Concomitant]
     Dosage: UNK, 40 QD
  4. AMLODIPINE [Concomitant]
     Dosage: UNK, 5 QD
  5. OMEPRAZOLE [Concomitant]
     Dosage: UNK, 20 QD
  6. METOPROLOL SUCCINATE [Concomitant]
     Dosage: UNK, 25 QD
  7. LANTUS [Concomitant]
     Dosage: 20 IU, QAM
  8. PRINIVIL [Concomitant]
     Dosage: 10 MG, QD
     Route: 048
  9. HYDROCHLOROTHIAZIDE [Concomitant]
     Dosage: 12.5 MG, QD
     Route: 048
  10. NITROSTAT [Concomitant]
     Dosage: UNK, PRN
  11. VITAMIN D (UNSPECIFIED) [Concomitant]
     Dosage: UNK, 1000 QD
  12. BASA [Concomitant]
     Dosage: UNK, QD
  13. IRON (UNSPECIFIED) [Concomitant]
     Dosage: 55 MG, QD
  14. ASCORBIC ACID [Concomitant]
     Dosage: 250 MG, QD

REACTIONS (4)
  - Vision blurred [Not Recovered/Not Resolved]
  - Cyanopsia [Not Recovered/Not Resolved]
  - Xanthopsia [Not Recovered/Not Resolved]
  - Diarrhoea [Recovered/Resolved]
